FAERS Safety Report 5357120-7 (Version None)
Quarter: 2007Q2

REPORT INFORMATION
  Report Type: 
  Country: None (occurrence: None)
  Receive Date: 20070614
  Receipt Date: 20070605
  Transmission Date: 20071010
  Serious: Yes (Disabling)
  Sender: FDA-Public Use
  Company Number: US-ALLERGAN-0603106US

PATIENT
  Sex: Female
  Weight: 63.492 kg

DRUGS (2)
  1. BOTOX COSMETIC [Suspect]
     Indication: SKIN WRINKLING
     Dosage: 50 UNITS, SINGLE
     Route: 030
     Dates: start: 20060714, end: 20060714
  2. ATENOLOL [Concomitant]
     Indication: DRUG USE FOR UNKNOWN INDICATION

REACTIONS (13)
  - ARTHRALGIA [None]
  - ASTHENIA [None]
  - BLOOD CREATINE PHOSPHOKINASE INCREASED [None]
  - DIPLOPIA [None]
  - DYSPNOEA [None]
  - GAIT DISTURBANCE [None]
  - MYALGIA [None]
  - MYASTHENIA GRAVIS [None]
  - MYOSITIS [None]
  - PAIN [None]
  - PALPITATIONS [None]
  - POLYNEUROPATHY [None]
  - VISUAL ACUITY REDUCED [None]
